FAERS Safety Report 5728005-9 (Version None)
Quarter: 2008Q2

REPORT INFORMATION
  Report Type: 
  Country: None (occurrence: None)
  Receive Date: 20080505
  Receipt Date: 20080429
  Transmission Date: 20081010
  Serious: Yes (Hospitalization)
  Sender: FDA-Public Use
  Company Number: US-BOEHRINGER INGELHEIM GMBH, GERMANY-2008-BP-06672BP

PATIENT
  Age: 70 Year
  Sex: Male

DRUGS (7)
  1. MOBIC [Suspect]
     Indication: OSTEOARTHRITIS
     Route: 048
     Dates: start: 20070529, end: 20070610
  2. MOBIC [Suspect]
     Route: 048
     Dates: start: 20070611
  3. ASPIRIN [Concomitant]
  4. SIMVASTATIN [Concomitant]
  5. LORSARTAN [Concomitant]
  6. PROTONIX [Concomitant]
  7. PLAVIX [Concomitant]

REACTIONS (1)
  - DIVERTICULITIS [None]
